FAERS Safety Report 9708247 (Version 1)
Quarter: 2013Q4

REPORT INFORMATION
  Report Type: Spontaneous
  Country: US (occurrence: US)
  Receive Date: 20131125
  Receipt Date: 20131125
  Transmission Date: 20140711
  Serious: No
  Sender: FDA-Public Use
  Company Number: US-TARO-2013P1003256

PATIENT
  Age: 56 Year
  Sex: Female
  Weight: 83.46 kg

DRUGS (12)
  1. CARBAMAZEPINE TABLETS USP 200 MG [Suspect]
     Indication: CONVULSION
     Route: 048
     Dates: start: 20130214, end: 20130312
  2. STEROID SHOTS [Concomitant]
  3. PRADAXA (DABIGATRAN ETEXILATE) [Concomitant]
  4. NUVIGIL (ARMODAFINIL) [Concomitant]
  5. MESCALINE [Concomitant]
  6. BACLOFEN [Concomitant]
  7. ZOFRAN [Concomitant]
  8. GABAPENTIN [Concomitant]
  9. DIAZEPAM AUTOINJECTOR [Concomitant]
  10. KEPPRA [Concomitant]
  11. LISINOPRIL [Concomitant]
  12. VITAMIN B12 INJECTION [Concomitant]

REACTIONS (3)
  - Tremor [Recovered/Resolved]
  - Pruritus [Recovered/Resolved]
  - Rash [Recovering/Resolving]
